FAERS Safety Report 4443649-2 (Version None)
Quarter: 2004Q3

REPORT INFORMATION
  Report Type: 
  Country: None (occurrence: None)
  Receive Date: 20040908
  Receipt Date: 20040902
  Transmission Date: 20050211
  Serious: Yes (Other)
  Sender: FDA-Public Use
  Company Number: SE0401

PATIENT
  Sex: Female

DRUGS (3)
  1. LOTRONEX [Suspect]
     Indication: DRUG USE FOR UNKNOWN INDICATION
     Dosage: 1TAB PER DAY
  2. KLONOPIN [Concomitant]
  3. MOBIC [Concomitant]
     Dates: start: 20040714, end: 20040714

REACTIONS (2)
  - LOSS OF CONSCIOUSNESS [None]
  - URINARY TRACT INFECTION [None]
